FAERS Safety Report 21527059 (Version 5)
Quarter: 2023Q2

REPORT INFORMATION
  Report Type: Spontaneous
  Country: JP (occurrence: JP)
  Receive Date: 20221031
  Receipt Date: 20230427
  Transmission Date: 20230721
  Serious: Yes (Other)
  Sender: FDA-Public Use
  Company Number: JP-JNJFOC-20221059299

PATIENT
  Age: 82 Year
  Sex: Female
  Weight: 52.2 kg

DRUGS (9)
  1. OPSUMIT [Suspect]
     Active Substance: MACITENTAN
     Indication: Pulmonary arterial hypertension
     Dosage: IN THE MORNING
     Route: 048
     Dates: start: 20221015, end: 20221020
  2. OPSUMIT [Suspect]
     Active Substance: MACITENTAN
     Dosage: IN THE MORNING
     Route: 048
     Dates: start: 20221021, end: 20221024
  3. TRICHLORMETHIAZIDE [Suspect]
     Active Substance: TRICHLORMETHIAZIDE
     Indication: Essential hypertension
     Dosage: IN THE MORNING
     Route: 048
     Dates: end: 20221025
  4. CANDESARTAN [Suspect]
     Active Substance: CANDESARTAN
     Indication: Essential hypertension
     Route: 048
  5. AMLODIPINE [Suspect]
     Active Substance: AMLODIPINE BESYLATE
     Indication: Essential hypertension
     Dosage: IN THE MORNING
     Route: 048
     Dates: end: 20221027
  6. FEBUXOSTAT [Suspect]
     Active Substance: FEBUXOSTAT
     Indication: Hyperuricaemia
     Route: 048
  7. FUROSEMIDE [Suspect]
     Active Substance: FUROSEMIDE
     Indication: Essential hypertension
     Route: 048
  8. EDOXABAN TOSYLATE [Suspect]
     Active Substance: EDOXABAN TOSYLATE
     Indication: Mitral valve incompetence
     Route: 048
  9. ACETAMINOPHEN [Suspect]
     Active Substance: ACETAMINOPHEN
     Indication: Back pain
     Dosage: AT THE TIME OF PAIN
     Route: 048

REACTIONS (4)
  - Acute kidney injury [Recovered/Resolved]
  - Scleroderma renal crisis [Recovered/Resolved]
  - Blood pressure decreased [Recovered/Resolved]
  - Wrong technique in product usage process [Unknown]

NARRATIVE: CASE EVENT DATE: 20220101
